FAERS Safety Report 8161836-7 (Version None)
Quarter: 2012Q1

REPORT INFORMATION
  Report Type: 
  Country: None (occurrence: None)
  Receive Date: 20120224
  Receipt Date: 20110719
  Transmission Date: 20120608
  Serious: No
  Sender: FDA-Public Use
  Company Number: US-BRISTOL-MYERS SQUIBB COMPANY-15896434

PATIENT
  Age: 51 Year
  Sex: Female

DRUGS (2)
  1. LANTUS [Suspect]
     Indication: TYPE 2 DIABETES MELLITUS
     Dosage: 1 DF = 15 UNITS,PARENTRAL INJ SOLUTION,100 INTERNATIONAL UNITS/MILLILITRE
     Route: 058
     Dates: start: 20090101
  2. METFORMIN HCL [Suspect]
     Dosage: 1 PILL IN MORNING AND 1 AT SUPPER TIME

REACTIONS (2)
  - VISUAL ACUITY REDUCED [None]
  - BLOOD GLUCOSE FLUCTUATION [None]
